FAERS Safety Report 4807498-5 (Version None)
Quarter: 2005Q4

REPORT INFORMATION
  Report Type: 
  Country: None (occurrence: None)
  Receive Date: 20051024
  Receipt Date: 20051013
  Transmission Date: 20060501
  Serious: Yes (Death)
  Sender: FDA-Public Use
  Company Number: PL-JNJFOC-20051003568

PATIENT
  Sex: Female
  Weight: 59 kg

DRUGS (1)
  1. REMINYL [Suspect]
     Route: 048

REACTIONS (2)
  - POST PROCEDURAL COMPLICATION [None]
  - SHOCK [None]
